FAERS Safety Report 5113025-8 (Version None)
Quarter: 2006Q3

REPORT INFORMATION
  Report Type: 
  Country: None (occurrence: None)
  Receive Date: 20060920
  Receipt Date: 20060907
  Transmission Date: 20061208
  Serious: Yes (Other)
  Sender: FDA-Public Use
  Company Number: 2006109063

PATIENT
  Age: 48 Year
  Sex: Male

DRUGS (4)
  1. LYRICA [Suspect]
     Indication: PAIN
  2. ASPIRIN [Suspect]
     Indication: CARDIAC DISORDER
  3. PLAVIX [Suspect]
     Indication: DRUG USE FOR UNKNOWN INDICATION
  4. CYMBALTA [Suspect]
     Indication: PAIN

REACTIONS (1)
  - GASTROINTESTINAL HAEMORRHAGE [None]
